FAERS Safety Report 25360229 (Version 1)
Quarter: 2025Q2

REPORT INFORMATION
  Report Type: Spontaneous
  Country: US (occurrence: US)
  Receive Date: 20250527
  Receipt Date: 20250527
  Transmission Date: 20250717
  Serious: No
  Sender: ACCORD
  Company Number: US-Accord-465614

PATIENT
  Sex: Female

DRUGS (31)
  1. METHOTREXATE [Suspect]
     Active Substance: METHOTREXATE
     Indication: Product used for unknown indication
  2. ABATACEPT [Concomitant]
     Active Substance: ABATACEPT
  3. ACTEMRA [Concomitant]
     Active Substance: TOCILIZUMAB
  4. SARILUMAB [Concomitant]
     Active Substance: SARILUMAB
  5. ENBREL [Concomitant]
     Active Substance: ETANERCEPT
  6. TOFACITINIB [Concomitant]
     Active Substance: TOFACITINIB
  7. REMICADE [Concomitant]
     Active Substance: INFLIXIMAB
  8. METHOTREXATE [Concomitant]
     Active Substance: METHOTREXATE
  9. ARAVA [Concomitant]
     Active Substance: LEFLUNOMIDE
  10. SIMPONI [Concomitant]
     Active Substance: GOLIMUMAB
  11. HUMIRA [Concomitant]
     Active Substance: ADALIMUMAB
  12. DULOXETINE [Concomitant]
     Active Substance: DULOXETINE
  13. LIDOCAINE [Concomitant]
     Active Substance: LIDOCAINE
  14. HYDROXYCHLOROQUINE [Concomitant]
     Active Substance: HYDROXYCHLOROQUINE
  15. DICLOFENAC [Concomitant]
     Active Substance: DICLOFENAC
  16. SULFASALAZINE [Concomitant]
     Active Substance: SULFASALAZINE
  17. MIRALAX [Concomitant]
     Active Substance: POLYETHYLENE GLYCOL 3350
  18. VITAMIN D3 [Concomitant]
     Active Substance: CHOLECALCIFEROL
  19. TRAMADOL [Concomitant]
     Active Substance: TRAMADOL
  20. FAMOTIDINE [Concomitant]
     Active Substance: FAMOTIDINE
  21. HYDROXYZINE HYDROCHLORIDE [Concomitant]
     Active Substance: HYDROXYZINE HYDROCHLORIDE
  22. ACETAMINOPHEN [Concomitant]
     Active Substance: ACETAMINOPHEN
  23. METFORMIN [Concomitant]
     Active Substance: METFORMIN HYDROCHLORIDE
  24. ASPIRIN [Concomitant]
     Active Substance: ASPIRIN
  25. PRILOSEC [Concomitant]
     Active Substance: OMEPRAZOLE MAGNESIUM
  26. ZOLOFT [Concomitant]
     Active Substance: SERTRALINE HYDROCHLORIDE
  27. BENAZEPRIL [Concomitant]
     Active Substance: BENAZEPRIL HYDROCHLORIDE
  28. OSCAL [Concomitant]
     Active Substance: CALCIUM CARBONATE
  29. CRESTOR [Concomitant]
     Active Substance: ROSUVASTATIN CALCIUM
  30. BARICITINIB [Concomitant]
     Active Substance: BARICITINIB
  31. CINNARIZINE [Concomitant]
     Active Substance: CINNARIZINE

REACTIONS (1)
  - Malaise [Unknown]
